FAERS Safety Report 5285365-3 (Version None)
Quarter: 2007Q2

REPORT INFORMATION
  Report Type: 
  Country: None (occurrence: None)
  Receive Date: 20070403
  Receipt Date: 20061018
  Transmission Date: 20071010
  Serious: Yes (Other)
  Sender: FDA-Public Use
  Company Number: US-PFIZER INC-2007024755

PATIENT
  Sex: Female

DRUGS (1)
  1. HALCION [Suspect]

REACTIONS (7)
  - ABNORMAL BEHAVIOUR [None]
  - CONFUSIONAL STATE [None]
  - DEPERSONALISATION [None]
  - DRUG DEPENDENCE [None]
  - HOMICIDE [None]
  - POST-TRAUMATIC STRESS DISORDER [None]
  - PSYCHOTIC DISORDER [None]
